FAERS Safety Report 21869377 (Version 1)
Quarter: 2023Q1

REPORT INFORMATION
  Report Type: Spontaneous
  Country: CN (occurrence: CN)
  Receive Date: 20230117
  Receipt Date: 20230117
  Transmission Date: 20230418
  Serious: Yes (Death, Other)
  Sender: FDA-Public Use
  Company Number: CN-STRIDES ARCOLAB LIMITED-2023SP000574

PATIENT
  Age: 7 Decade
  Sex: Female

DRUGS (11)
  1. DOXORUBICIN [Suspect]
     Active Substance: DOXORUBICIN
     Indication: Anaplastic large-cell lymphoma
     Dosage: UNK UNK, CYCLICAL CHOP REGIMEN
     Route: 065
  2. DOXORUBICIN [Suspect]
     Active Substance: DOXORUBICIN
     Indication: Chronic lymphocytic leukaemia stage 4
     Dosage: UNK UNK, CYCLICAL CHOP REGIMEN (SECOND CHEMOTHERAPY CYCLE)
     Route: 065
  3. PREDNISOLONE [Suspect]
     Active Substance: PREDNISOLONE
     Indication: Anaplastic large-cell lymphoma
     Dosage: UNK, CYCLICAL; CHOP REGIMEN (SECOND CHEMOTHERAPY CYCLE)
     Route: 065
  4. PREDNISOLONE [Suspect]
     Active Substance: PREDNISOLONE
     Indication: Chronic lymphocytic leukaemia stage 4
     Dosage: UNK, CYCLICAL; CHOP REGIMEN (SECOND CHEMOTHERAPY CYCLE)
     Route: 065
  5. IBRUTINIB [Suspect]
     Active Substance: IBRUTINIB
     Indication: B-cell small lymphocytic lymphoma stage I
     Dosage: 420 MILLIGRAM PER DAY
     Route: 048
  6. IBRUTINIB [Suspect]
     Active Substance: IBRUTINIB
     Indication: Anaplastic large-cell lymphoma
     Dosage: 420 MILLIGRAM PER DAY; ALONG WITH CHOP REGIMEN
     Route: 065
  7. IBRUTINIB [Suspect]
     Active Substance: IBRUTINIB
     Indication: Chronic lymphocytic leukaemia stage 4
  8. CYCLOPHOSPHAMIDE [Suspect]
     Active Substance: CYCLOPHOSPHAMIDE
     Indication: Anaplastic large-cell lymphoma
     Dosage: UNK UNK, CYCLICAL CHOP REGIMEN
     Route: 065
  9. CYCLOPHOSPHAMIDE [Suspect]
     Active Substance: CYCLOPHOSPHAMIDE
     Indication: Chronic lymphocytic leukaemia stage 4
     Dosage: UNK UNK, CYCLICAL CHOP REGIMEN (SECOND CHEMOTHERAPY CYCLE)
     Route: 065
  10. VINCRISTINE [Suspect]
     Active Substance: VINCRISTINE
     Indication: Anaplastic large-cell lymphoma
     Dosage: UNK UNK, CYCLICAL CHOP REGIMEN
     Route: 065
  11. VINCRISTINE [Suspect]
     Active Substance: VINCRISTINE
     Indication: Chronic lymphocytic leukaemia stage 4
     Dosage: UNK UNK, CYCLICAL CHOP REGIMEN (SECOND CHEMOTHERAPY CYCLE)
     Route: 065

REACTIONS (2)
  - Infection [Fatal]
  - Neutropenia [Unknown]
